FAERS Safety Report 10026664 (Version 1)
Quarter: 2014Q1

REPORT INFORMATION
  Report Type: Spontaneous
  Country: US (occurrence: US)
  Receive Date: 20140321
  Receipt Date: 20140321
  Transmission Date: 20141002
  Serious: No
  Sender: FDA-Public Use
  Company Number: US-009507513-1403USA006971

PATIENT
  Age: 76 Year
  Sex: Female

DRUGS (2)
  1. COSOPT PF [Suspect]
     Indication: GLAUCOMA
     Dosage: 1 DROP IN RIGHT TWICE DAILY
     Route: 047
     Dates: start: 20140224
  2. ZIOPTAN [Concomitant]
     Route: 047

REACTIONS (2)
  - Superficial injury of eye [Recovered/Resolved]
  - Product quality issue [Unknown]
